FAERS Safety Report 20816254 (Version 1)
Quarter: 2022Q2

REPORT INFORMATION
  Report Type: Spontaneous
  Country: US (occurrence: US)
  Receive Date: 20220511
  Receipt Date: 20220511
  Transmission Date: 20220721
  Serious: No
  Sender: FDA-Public Use
  Company Number: US-drreddys-SPO/USA/22/0149690

PATIENT
  Age: 18 Year
  Sex: Female

DRUGS (1)
  1. ZENATANE [Suspect]
     Active Substance: ISOTRETINOIN
     Indication: Acne
     Dosage: RMA ISSUE DATE : 25 JANUARY 2022 10:48:56 AM, 24 FEBRUARY 2022 01:39:55 PM AND 28 MARCH 2022 02:37:1

REACTIONS (1)
  - Hypersensitivity [Unknown]
